FAERS Safety Report 8517811-3 (Version None)
Quarter: 2012Q3

REPORT INFORMATION
  Report Type: 
  Country: None (occurrence: None)
  Receive Date: 20120718
  Receipt Date: 20120711
  Transmission Date: 20120928
  Serious: Yes (Hospitalization)
  Sender: FDA-Public Use
  Company Number: US-BAYER-2012-070666

PATIENT
  Age: 41 Year
  Sex: Female

DRUGS (7)
  1. XANAX [Concomitant]
     Dosage: 0.25 MG, THREE TIMES A DAY AS NEEDED
     Route: 048
  2. DROSPIRENONE AND ETHINYL ESTRADIOL [Suspect]
     Dosage: UNK
  3. BUSPAR [Concomitant]
     Dosage: 7.5 MG, TWICE A DIALY
     Route: 048
  4. YASMIN [Suspect]
     Dosage: UNK
  5. FOLTX [Concomitant]
     Dosage: 1 MG, DAILY
     Route: 048
  6. DUONEB [Concomitant]
     Dosage: EVERY 6 HOURS INHALED AS NEEDED
  7. ADVAIR DISKUS 100/50 [Concomitant]
     Dosage: UNK

REACTIONS (2)
  - DEEP VEIN THROMBOSIS [None]
  - PULMONARY EMBOLISM [None]
